FAERS Safety Report 7718596-0 (Version None)
Quarter: 2011Q3

REPORT INFORMATION
  Report Type: 
  Country: None (occurrence: None)
  Receive Date: 20110830
  Receipt Date: 20100716
  Transmission Date: 20111222
  Serious: No
  Sender: FDA-Public Use
  Company Number: US-BAYER-201028279NA

PATIENT
  Age: 3 Year
  Sex: Male

DRUGS (1)
  1. BILTRICIDE [Suspect]
     Route: 048

REACTIONS (1)
  - NO ADVERSE EVENT [None]
